FAERS Safety Report 17814428 (Version 12)
Quarter: 2022Q4

REPORT INFORMATION
  Report Type: Report from Study
  Country: DE (occurrence: DE)
  Receive Date: 20200522
  Receipt Date: 20221021
  Transmission Date: 20230113
  Serious: Yes (Life-Threatening, Hospitalization, Disabling, Other)
  Sender: FDA-Public Use
  Company Number: DE-BRISTOL-MYERS SQUIBB COMPANY-BMS-2020-039282

PATIENT
  Age: 60 Year
  Sex: Male
  Weight: 100 kg

DRUGS (52)
  1. LENALIDOMIDE [Suspect]
     Active Substance: LENALIDOMIDE
     Indication: Plasma cell myeloma
     Dosage: 25 MILLIGRAM?DURATION TEXT : D1-15 OF A CYCLE
     Route: 048
     Dates: start: 20200429, end: 20200513
  2. DEXAMETHASONE [Suspect]
     Active Substance: DEXAMETHASONE
     Indication: Plasma cell myeloma
     Dosage: 8 MILLIGRAM?DURATION TEXT : D1, 8, 15 OF A CYCLE IN A 28 DAY CYCLE
     Route: 040
     Dates: start: 20200429, end: 20200513
  3. DEXAMETHASONE [Suspect]
     Active Substance: DEXAMETHASONE
     Dosage: 28 MILLIGRAM?DURATION TEXT : D1, 8, 15 OF A CYCLE IN A 28 DAY CYCLE
     Route: 048
     Dates: start: 20200429, end: 20200513
  4. ELOTUZUMAB [Suspect]
     Active Substance: ELOTUZUMAB
     Indication: Plasma cell myeloma
     Route: 042
     Dates: start: 20200429, end: 20200513
  5. CARFILZOMIB [Suspect]
     Active Substance: CARFILZOMIB
     Indication: Plasma cell myeloma
     Route: 042
     Dates: start: 20200429, end: 20200514
  6. INNOHEP [Concomitant]
     Active Substance: TINZAPARIN SODIUM
     Indication: Thrombosis prophylaxis
     Dosage: 4500 INTERNATIONAL UNIT, QD
     Route: 058
     Dates: start: 20200429
  7. PANTOPRAZOLE [Concomitant]
     Active Substance: PANTOPRAZOLE
     Indication: Prophylaxis against gastrointestinal ulcer
     Dosage: 40 MILLIGRAM
     Route: 048
     Dates: start: 20200429, end: 20200516
  8. PANTOPRAZOLE [Concomitant]
     Active Substance: PANTOPRAZOLE
     Dosage: 40 UNK
     Route: 042
     Dates: start: 20200517
  9. ESPUMISAN [DIMETICONE] [Concomitant]
     Indication: Flatulence
     Dosage: 160 MILLIGRAM
     Route: 048
     Dates: start: 20200513
  10. MOVICOL [Concomitant]
     Active Substance: POLYETHYLENE GLYCOL 3350\POTASSIUM CHLORIDE\SODIUM BICARBONATE\SODIUM CHLORIDE
     Indication: Constipation
     Dosage: 81 MILLIGRAM
     Route: 048
     Dates: start: 20200430, end: 20200516
  11. VALTREX [Concomitant]
     Active Substance: VALACYCLOVIR HYDROCHLORIDE
     Indication: Antiviral prophylaxis
     Dosage: 500 MILLIGRAM
     Route: 048
     Dates: start: 20200429
  12. DEXAMETHASONE ACETATE [Concomitant]
     Active Substance: DEXAMETHASONE ACETATE
     Indication: Premedication
     Dosage: 8 MILLIGRAM
     Route: 042
  13. DEXAMETHASONE ACETATE [Concomitant]
     Active Substance: DEXAMETHASONE ACETATE
     Dosage: 28 MILLIGRAM
     Route: 048
  14. PREGABALIN [Concomitant]
     Active Substance: PREGABALIN
     Indication: Prophylaxis
     Dosage: 75 MILLIGRAM
     Route: 048
     Dates: start: 20200511
  15. SODIUM CHLORIDE [Concomitant]
     Active Substance: SODIUM CHLORIDE
     Indication: Prophylaxis
     Dosage: 500 MILLILITER
     Route: 042
     Dates: start: 20200502, end: 20200515
  16. CLEMASTINE [Concomitant]
     Active Substance: CLEMASTINE
     Indication: Prophylaxis
     Dosage: 2 MILLIGRAM
     Route: 042
     Dates: start: 20200506, end: 20200513
  17. LASIX [Concomitant]
     Active Substance: FUROSEMIDE
     Indication: Product used for unknown indication
     Dosage: 40 MILLIGRAM
     Route: 042
     Dates: start: 20200514
  18. SODIUM CHLORIDE [Concomitant]
     Active Substance: SODIUM CHLORIDE
     Indication: Product used for unknown indication
     Dosage: 0.9 PERCENT PER 10 ML
     Route: 065
     Dates: start: 20200508, end: 20200512
  19. MIDAZOLAM [Concomitant]
     Active Substance: MIDAZOLAM
     Indication: Anxiety
     Dosage: FREQUENCY TEXT: UNIT DOSE
     Route: 042
     Dates: start: 20200515, end: 20200515
  20. PROPOFOL [Concomitant]
     Active Substance: PROPOFOL
     Indication: Anxiety
     Dosage: 2ML UNIT DOSE
     Route: 042
     Dates: start: 20200515, end: 20200515
  21. PROPOFOL [Concomitant]
     Active Substance: PROPOFOL
     Indication: Pulmonary sepsis
     Dosage: UNIT DOSE : 20 MILLIGRAM/MILLILITERS?FREQUENCY TEXT: AS NEEDED
     Route: 042
     Dates: start: 20200516
  22. SEVOFLURANE [Concomitant]
     Active Substance: SEVOFLURANE
     Indication: Product used for unknown indication
     Route: 065
  23. CALCIUM GLUCONATE [Concomitant]
     Active Substance: CALCIUM GLUCONATE
     Indication: Product used for unknown indication
     Dosage: FREQUENCY TEXT: AS NEEEED
     Route: 042
     Dates: start: 20200517
  24. CARBOHYDRATES\FATTY ACIDS\MINERALS\PROTEIN\VITAMINS [Concomitant]
     Active Substance: CARBOHYDRATES\FATTY ACIDS\MINERALS\PROTEIN\VITAMINS
     Indication: Parenteral nutrition
     Dosage: 2KCAL/ML
     Route: 065
     Dates: start: 20200517
  25. HEPARIN SODIUM [Concomitant]
     Active Substance: HEPARIN SODIUM
     Indication: Thrombosis prophylaxis
     Route: 065
  26. METOCLOPRAMIDE [Concomitant]
     Active Substance: METOCLOPRAMIDE
     Indication: Constipation
     Dosage: FREQUENCY TEXT: AS NEEDED
     Route: 042
     Dates: start: 20200519
  27. ESOMEPRAZOLE [Concomitant]
     Active Substance: ESOMEPRAZOLE
     Indication: Prophylaxis
     Dosage: 40 MILLIGRAM, QD
     Route: 048
     Dates: start: 202003
  28. METOPROLOL [Concomitant]
     Active Substance: METOPROLOL
     Indication: Hypertension
     Dosage: 47.5 MILLIGRAM, BID
     Route: 065
  29. LACTULOSE [Concomitant]
     Active Substance: LACTULOSE
     Indication: Prophylaxis
     Dosage: 5 MILLILITER, BID
     Route: 048
     Dates: start: 20200529, end: 20200611
  30. Jonosteril [Concomitant]
     Indication: Pneumonia
     Dosage: FREQUENCY TEXT: AS NEEDED?500ML/1000ML
     Route: 042
     Dates: start: 20200515
  31. Jonosteril [Concomitant]
     Indication: Pulmonary sepsis
     Route: 065
     Dates: start: 2020
  32. ATROVENT [Concomitant]
     Active Substance: IPRATROPIUM BROMIDE
     Indication: Pneumonia
     Dosage: 1000 MICROGRAM  (PULMONAL)
     Route: 055
     Dates: start: 20200514, end: 20200514
  33. ATROVENT [Concomitant]
     Active Substance: IPRATROPIUM BROMIDE
     Indication: Pulmonary sepsis
     Route: 065
     Dates: start: 2020
  34. SULTANOL [Concomitant]
     Active Substance: ALBUTEROL SULFATE
     Indication: Pneumonia
     Dosage: 5 MILLIGRAM
     Route: 055
     Dates: start: 20200514
  35. SULTANOL [Concomitant]
     Active Substance: ALBUTEROL SULFATE
     Indication: Pulmonary sepsis
  36. CALCIUM CHLORIDE\MAGNESIUM CHLORIDE\POTASSIUM CHLORIDE\SODIUM ACETATE\ [Concomitant]
     Active Substance: CALCIUM CHLORIDE\MAGNESIUM CHLORIDE\POTASSIUM CHLORIDE\SODIUM ACETATE\SODIUM CHLORIDE
     Indication: Pneumonia
     Dosage: FREQUENCY TEXT: AS NEEDED
     Route: 042
     Dates: start: 20200515
  37. CALCIUM CHLORIDE\MAGNESIUM CHLORIDE\POTASSIUM CHLORIDE\SODIUM ACETATE\ [Concomitant]
     Active Substance: CALCIUM CHLORIDE\MAGNESIUM CHLORIDE\POTASSIUM CHLORIDE\SODIUM ACETATE\SODIUM CHLORIDE
     Indication: Pulmonary sepsis
     Route: 065
     Dates: start: 2020
  38. NOREPINEPHRINE [Concomitant]
     Active Substance: NOREPINEPHRINE
     Indication: Cardiovascular disorder
     Dosage: UNIT DOSE : 1 MILLIGRAM/MILLILITERS?FREQUENCY TEXT: AS NEEDED
     Route: 065
     Dates: start: 20200516
  39. NOREPINEPHRINE [Concomitant]
     Active Substance: NOREPINEPHRINE
     Indication: Pulmonary sepsis
     Route: 065
     Dates: start: 2020
  40. SUFENTANIL [Concomitant]
     Active Substance: SUFENTANIL
     Indication: Analgesic therapy
     Dosage: FREQUENCY TEXT: AS NEEDED?500UG/50ML
     Route: 042
     Dates: start: 20200516
  41. SUFENTANIL [Concomitant]
     Active Substance: SUFENTANIL
     Indication: Pulmonary sepsis
     Route: 065
     Dates: start: 2020
  42. SEVOFLURANE [Concomitant]
     Active Substance: SEVOFLURANE
     Indication: Anaesthesia
     Dosage: FREQUENCY TEXT: AS NEEEED?50ML 1FU
     Route: 065
     Dates: start: 20200517
  43. FRESUBIN HP ENERGY [Concomitant]
     Indication: Parenteral nutrition
     Dosage: 1200 MILLILITER
     Route: 065
     Dates: start: 20200517
  44. Heparin plus nacl [Concomitant]
     Indication: Thrombosis prophylaxis
     Dosage: FREQUENCY TEXT: AS NEEDED?10000IU/50ML
     Route: 042
     Dates: start: 20200517
  45. Rocuroniun Bromide [Concomitant]
     Indication: Anaesthesia
     Dosage: FREQUENCY TEXT: UNIT DOSE
     Route: 065
     Dates: start: 20200517, end: 20200517
  46. Rocuroniun Bromide [Concomitant]
     Indication: Pulmonary sepsis
     Route: 065
     Dates: start: 2020
  47. Ganciclovir+Nacl [Concomitant]
     Indication: Product used for unknown indication
     Dosage: 250MG/50ML 100ML/HR
     Route: 042
     Dates: start: 20200519
  48. Espumisam [Concomitant]
     Indication: Flatulence
     Dosage: FREQUENCY TEXT: AS NEEDED
     Route: 048
     Dates: start: 20200513
  49. MOVICOL [Concomitant]
     Active Substance: POLYETHYLENE GLYCOL 3350\POTASSIUM CHLORIDE\SODIUM BICARBONATE\SODIUM CHLORIDE
     Indication: Constipation
     Dosage: FREQUENCY TEXT: AS NEEDED
     Route: 048
     Dates: start: 20200430, end: 20200516
  50. SODIUM CHLORIDE [Concomitant]
     Active Substance: SODIUM CHLORIDE
     Indication: Product used for unknown indication
     Dosage: 0.9%/10 ML
     Route: 055
     Dates: start: 20200508, end: 20200512
  51. CLEMASTINE FUMARATE [Concomitant]
     Active Substance: CLEMASTINE FUMARATE
     Indication: Prophylaxis
     Dosage: 2 MILLIGRAM
     Route: 042
     Dates: start: 20200506, end: 20200513
  52. LASIX [Concomitant]
     Active Substance: FUROSEMIDE
     Indication: Product used for unknown indication
     Dosage: FREQUENCY TEXT: AS NEEDED
     Route: 042
     Dates: start: 20200514, end: 20200514

REACTIONS (4)
  - Septic shock [Recovered/Resolved]
  - Multiple organ dysfunction syndrome [Recovered/Resolved]
  - Acute kidney injury [Recovered/Resolved]
  - Cerebral infarction [Recovered/Resolved with Sequelae]

NARRATIVE: CASE EVENT DATE: 20200514
